FAERS Safety Report 6661749-3 (Version None)
Quarter: 2010Q1

REPORT INFORMATION
  Report Type: 
  Country: None (occurrence: None)
  Receive Date: 20100331
  Receipt Date: 20090702
  Transmission Date: 20100710
  Serious: Yes (Other)
  Sender: FDA-Public Use
  Company Number: US-BRISTOL-MYERS SQUIBB COMPANY-14641302

PATIENT
  Age: 75 Year
  Sex: Male

DRUGS (4)
  1. ERBITUX [Suspect]
     Indication: TONSIL CANCER
     Dosage: IV INFUSION VIA INFUSAPORT
     Route: 042
     Dates: start: 20090414, end: 20090414
  2. TYLENOL-500 [Concomitant]
     Indication: PREMEDICATION
  3. BENADRYL [Concomitant]
     Indication: PREMEDICATION
  4. SOLU-MEDROL [Concomitant]
     Indication: PREMEDICATION

REACTIONS (4)
  - BLOOD PRESSURE DECREASED [None]
  - CHEST DISCOMFORT [None]
  - FLUSHING [None]
  - PARAESTHESIA [None]
